APPROVED DRUG PRODUCT: ERYPED
Active Ingredient: ERYTHROMYCIN ETHYLSUCCINATE
Strength: EQ 200MG BASE
Dosage Form/Route: TABLET, CHEWABLE;ORAL
Application: N050297 | Product #003
Applicant: AZURITY PHARMACEUTICALS INC
Approved: Jul 5, 1988 | RLD: No | RS: No | Type: DISCN